FAERS Safety Report 9105971 (Version 1)
Quarter: 2013Q1

REPORT INFORMATION
  Report Type: Report from Study
  Country: IT (occurrence: IT)
  Receive Date: 20130220
  Receipt Date: 20130220
  Transmission Date: 20140127
  Serious: Yes (Hospitalization)
  Sender: FDA-Public Use
  Company Number: IT-BRISTOL-MYERS SQUIBB COMPANY-16978777

PATIENT
  Age: 56 Year
  Sex: Female
  Weight: 56 kg

DRUGS (12)
  1. ALD518 [Suspect]
     Indication: STOMATITIS
     Dosage: NO OF DOSES:2
     Route: 042
     Dates: start: 20120903, end: 20120903
  2. CISPLATIN [Suspect]
     Indication: HEAD AND NECK CANCER
     Dosage: 7.5714MG
     Dates: start: 20120904, end: 20120904
  3. BLINDED: PLACEBO [Suspect]
     Indication: STOMATITIS
     Dates: start: 20120903, end: 20120903
  4. RANITIDINE [Concomitant]
     Route: 042
     Dates: start: 20120904, end: 20120905
  5. OMEPRAZOLE [Concomitant]
     Route: 048
     Dates: start: 20120904
  6. PANTOPRAZOLE [Concomitant]
     Route: 048
     Dates: start: 20120904, end: 20120907
  7. DEXAMETHASONE [Concomitant]
     Indication: CHEMOTHERAPY
     Dosage: 1DF: 12MG ONCE(04-04-SEP12), 8MG(1IN 1 D)(05-06SEP12)
     Route: 042
     Dates: start: 20120904, end: 20120906
  8. ONDANSETRON [Concomitant]
     Indication: CHEMOTHERAPY
     Dosage: 04-04SEP12, 06-06SEP12
     Route: 042
     Dates: start: 20120904, end: 20120906
  9. BROMAZEPAM [Concomitant]
     Indication: ANXIETY
     Dosage: DROPS, 10ONCE
     Route: 048
     Dates: start: 20120904, end: 20120904
  10. APREPITANT [Concomitant]
     Indication: CHEMOTHERAPY
     Route: 048
     Dates: start: 20120904, end: 20120904
  11. MAGNESIUM SULFATE [Concomitant]
     Indication: CHEMOTHERAPY
     Dosage: IN SALINE SOLUTION, ONCE
     Route: 042
     Dates: start: 20120904, end: 20120904
  12. MANNITOL [Concomitant]
     Indication: CHEMOTHERAPY
     Route: 042
     Dates: start: 20120904, end: 20120904

REACTIONS (3)
  - Atrial fibrillation [Not Recovered/Not Resolved]
  - Aspartate aminotransferase increased [Recovered/Resolved]
  - Alanine aminotransferase increased [Recovered/Resolved]
